FAERS Safety Report 8006955-0 (Version None)
Quarter: 2011Q4

REPORT INFORMATION
  Report Type: 
  Country: None (occurrence: None)
  Receive Date: 20111222
  Receipt Date: 20111222
  Transmission Date: 20120403
  Serious: Yes (Death, Hospitalization)
  Sender: FDA-Public Use
  Company Number: None

PATIENT
  Sex: Female
  Weight: 68 kg

DRUGS (6)
  1. ATIVAN [Concomitant]
  2. LOVASTATIN [Concomitant]
  3. TRAZODONE HCL [Concomitant]
  4. HYDROCHLOROTHIAZIDE [Concomitant]
  5. CISPLATIN [Suspect]
     Dosage: 120 MG
     Dates: end: 20110118
  6. DOCETAXEL (TAXOTERE) [Suspect]
     Dosage: 120 MG
     Dates: end: 20110118

REACTIONS (9)
  - BLOOD UREA INCREASED [None]
  - PNEUMONIA [None]
  - HYPOTENSION [None]
  - WHITE BLOOD CELL COUNT DECREASED [None]
  - AGITATION [None]
  - UNRESPONSIVE TO STIMULI [None]
  - DEHYDRATION [None]
  - CARDIO-RESPIRATORY ARREST [None]
  - DEPRESSED LEVEL OF CONSCIOUSNESS [None]
